FAERS Safety Report 9508364 (Version 1)
Quarter: 2013Q3

REPORT INFORMATION
  Report Type: Spontaneous
  Country: US (occurrence: US)
  Receive Date: 20130909
  Receipt Date: 20130909
  Transmission Date: 20140515
  Serious: Yes (Other)
  Sender: FDA-Public Use
  Company Number: US-PFIZER INC-2013255445

PATIENT
  Age: 57 Year
  Sex: Male
  Weight: 89.8 kg

DRUGS (8)
  1. LIPITOR [Suspect]
     Indication: BLOOD CHOLESTEROL INCREASED
     Dosage: UNK
     Dates: start: 2005
  2. NEURONTIN [Suspect]
     Indication: PERIPHERAL NERVE INJURY
     Dosage: UNK
     Dates: start: 201111
  3. NEURONTIN [Suspect]
     Dosage: UNK,  TWO TIMES A DAY
     Dates: start: 201305, end: 201305
  4. NEURONTIN [Suspect]
     Dosage: UNK, FOUR TIMES A DAY
     Dates: start: 201305, end: 201305
  5. VIAGRA [Suspect]
     Indication: ERECTILE DYSFUNCTION
     Dosage: 100 MG, AS NEEDED
     Dates: start: 201201
  6. VIAGRA [Suspect]
     Indication: SEXUAL DYSFUNCTION
  7. ATENOLOL/CHLORTHALIDONE [Concomitant]
     Indication: HYPERTENSION
     Dosage: UNK
  8. TESTOSTERONE [Concomitant]
     Dosage: UNK

REACTIONS (8)
  - Spinal fracture [Not Recovered/Not Resolved]
  - Back injury [Unknown]
  - Intervertebral disc compression [Unknown]
  - Musculoskeletal disorder [Unknown]
  - Intentional drug misuse [Unknown]
  - Blood potassium decreased [Unknown]
  - Fall [Unknown]
  - Weight increased [Unknown]
